FAERS Safety Report 14944809 (Version 1)
Quarter: 2018Q2

REPORT INFORMATION
  Report Type: Spontaneous
  Country: FR (occurrence: FR)
  Receive Date: 20180529
  Receipt Date: 20180529
  Transmission Date: 20180711
  Serious: Yes (Hospitalization)
  Sender: FDA-Public Use
  Company Number: FR-TEVA-2018-FR-898926

PATIENT
  Age: 18 Year
  Sex: Female

DRUGS (6)
  1. PIVALONE (TIXOCORTOL PIVALATE) [Suspect]
     Active Substance: TIXOCORTOL PIVALATE
     Indication: NASOPHARYNGITIS
     Route: 045
     Dates: start: 20180203
  2. DIMETANE SANS SUCRE 133 MG/100 ML, SIROP [Suspect]
     Active Substance: BROMPHENIRAMINE MALEATE\PHOLCODINE
     Indication: COUGH
     Route: 048
     Dates: start: 20180203
  3. ZOMIGORO 2,5 MG, COMPRIM? ORODISPERSIBLE [Concomitant]
     Indication: MIGRAINE
     Route: 048
     Dates: start: 2015
  4. OFLOCET (OFLOXACIN) [Suspect]
     Active Substance: OFLOXACIN
     Indication: OTORRHOEA
     Dosage: 4 DOSAGE FORMS DAILY; ?1 DOSE MORNING AND EVENING IN THE EARS
     Route: 001
     Dates: start: 20180203
  5. FLANID 200 MG, COMPRIM? S?CABLE [Suspect]
     Active Substance: TIAPROFENIC ACID
     Indication: OTORRHOEA
     Dosage: 3 DOSAGE FORMS DAILY;
     Route: 048
     Dates: start: 20180203, end: 20180206
  6. OMEPRAZOLE DELAYED RELEASE CAPSULES,10 MG, 20 MG AND 30 MG [Suspect]
     Active Substance: OMEPRAZOLE
     Indication: GASTROOESOPHAGEAL REFLUX DISEASE
     Dosage: 1 DOSAGE FORMS DAILY;
     Route: 048
     Dates: start: 20180203, end: 20180206

REACTIONS (2)
  - Rash maculo-papular [Recovering/Resolving]
  - Oedema peripheral [Recovering/Resolving]

NARRATIVE: CASE EVENT DATE: 20180206
